FAERS Safety Report 8474390-7 (Version None)
Quarter: 2012Q2

REPORT INFORMATION
  Report Type: 
  Country: None (occurrence: None)
  Receive Date: 20120628
  Receipt Date: 20120420
  Transmission Date: 20120825
  Serious: Yes (Other)
  Sender: FDA-Public Use
  Company Number: US-MYLANLABS-2012S1005526

PATIENT
  Age: 46 Year
  Sex: Male
  Weight: 100 kg

DRUGS (11)
  1. BUSPIRONE HCL [Concomitant]
  2. PAXIL [Concomitant]
  3. CLOZAPINE [Suspect]
     Indication: SCHIZOPHRENIA
     Dosage: TAKES 2 TABLETS AT 8AM AND 5PM
     Route: 048
     Dates: start: 20111208, end: 20120314
  4. CLOZAPINE [Suspect]
     Route: 048
     Dates: start: 20111208, end: 20120314
  5. DIVALPROEX SODIUM [Suspect]
     Indication: MOOD DISORDER DUE TO A GENERAL MEDICAL CONDITION
     Dosage: TAKES 1 TABLET IN THE AM AND 2 TABLETS AT HS.
     Route: 048
     Dates: start: 20110501
  6. COGENTIN [Concomitant]
  7. DIVALPROEX SODIUM [Suspect]
     Route: 048
     Dates: start: 20110501
  8. DIVALPROEX SODIUM [Suspect]
     Indication: PSYCHOTIC DISORDER
     Dosage: TAKES 1 TABLET IN THE AM AND 2 TABLETS AT HS.
     Route: 048
     Dates: start: 20110501
  9. HALDOL [Concomitant]
  10. STELAZINE [Concomitant]
  11. DIVALPROEX SODIUM [Suspect]
     Route: 048
     Dates: start: 20110501

REACTIONS (1)
  - GRANULOCYTOPENIA [None]
